FAERS Safety Report 8056851 (Version 3)
Quarter: 2013Q3

REPORT INFORMATION
  Report Type: Spontaneous
  Country: BR (occurrence: BR)
  Receive Date: 20101231
  Receipt Date: 20130814
  Transmission Date: 20140515
  Serious: Yes (Other)
  Sender: FDA-Public Use
  Company Number: BR-PFIZER INC-BR-WYE-H08672509

PATIENT
  Age: 25 Year
  Sex: Female
  Weight: 76 kg

DRUGS (1)
  1. EVANOR [Suspect]
     Indication: CONTRACEPTION
     Dosage: 1 TABLET, 1X/DAY
     Route: 048
     Dates: start: 2007

REACTIONS (7)
  - Cervix inflammation [Not Recovered/Not Resolved]
  - Breast discharge [Not Recovered/Not Resolved]
  - Breast tenderness [Not Recovered/Not Resolved]
  - Menstruation delayed [Not Recovered/Not Resolved]
  - Inappropriate schedule of drug administration [Not Recovered/Not Resolved]
  - Abnormal withdrawal bleeding [Unknown]
  - Menstrual disorder [Not Recovered/Not Resolved]
